FAERS Safety Report 5267870-9 (Version None)
Quarter: 2007Q1

REPORT INFORMATION
  Report Type: 
  Country: None (occurrence: None)
  Receive Date: 20061213
  Receipt Date: 20041221
  Transmission Date: 20070707
  Serious: Yes (Other)
  Sender: FDA-Public Use
  Company Number: 2004UW25016

PATIENT
  Age: 81 Year
  Sex: Female
  Weight: 44.452 kg

DRUGS (6)
  1. IRESSA [Suspect]
     Indication: NON-SMALL CELL LUNG CANCER
     Dosage: 250 MG QD PO
     Route: 048
  2. CARDIZEM [Concomitant]
  3. WELCHOL [Concomitant]
  4. MAG-OX [Concomitant]
  5. ZETIA [Concomitant]
  6. LEXAPRO [Concomitant]

REACTIONS (7)
  - COUGH [None]
  - DIARRHOEA [None]
  - DRY MOUTH [None]
  - DRY SKIN [None]
  - FATIGUE [None]
  - RASH PAPULAR [None]
  - SLUGGISHNESS [None]
